FAERS Safety Report 10627976 (Version 1)
Quarter: 2014Q4

REPORT INFORMATION
  Report Type: Spontaneous
  Country: US (occurrence: US)
  Receive Date: 20141205
  Receipt Date: 20141205
  Transmission Date: 20150529
  Serious: Yes (Hospitalization, Other)
  Sender: FDA-Public Use
  Company Number: US-BRISTOL-MYERS SQUIBB COMPANY-20187407

PATIENT
  Age: 78 Year
  Sex: Male
  Weight: 85.26 kg

DRUGS (10)
  1. BUPROPION [Concomitant]
     Active Substance: BUPROPION
  2. VYTORIN [Concomitant]
     Active Substance: EZETIMIBE\SIMVASTATIN
     Dosage: 1 DF=10-20 MG
  3. CITALOPRAM [Concomitant]
     Active Substance: CITALOPRAM HYDROBROMIDE
  4. DIGOXIN. [Concomitant]
     Active Substance: DIGOXIN
  5. POTASSIUM CHLORIDE. [Concomitant]
     Active Substance: POTASSIUM CHLORIDE
  6. ERBITUX [Suspect]
     Active Substance: CETUXIMAB
     Indication: TONGUE NEOPLASM MALIGNANT STAGE UNSPECIFIED
     Dates: start: 201310
  7. LOSARTAN POTASSIUM. [Concomitant]
     Active Substance: LOSARTAN POTASSIUM
  8. BUPROPION [Concomitant]
     Active Substance: BUPROPION
  9. JANTOVEN [Concomitant]
     Active Substance: WARFARIN SODIUM
  10. BYSTOLIC [Concomitant]
     Active Substance: NEBIVOLOL HYDROCHLORIDE

REACTIONS (10)
  - Malaise [Unknown]
  - Diarrhoea [Unknown]
  - Weight decreased [Unknown]
  - Eating disorder [Unknown]
  - Confusional state [Unknown]
  - Hypersomnia [Unknown]
  - Pain [Unknown]
  - Headache [Unknown]
  - Fall [Unknown]
  - Fungal infection [Unknown]
